FAERS Safety Report 12849447 (Version 1)
Quarter: 2016Q4

REPORT INFORMATION
  Report Type: Spontaneous
  Country: US (occurrence: US)
  Receive Date: 20161014
  Receipt Date: 20161014
  Transmission Date: 20170207
  Serious: No
  Sender: FDA-Public Use
  Company Number: US-ROCHE-1759625

PATIENT
  Sex: Male

DRUGS (7)
  1. ZOFRAN [Concomitant]
     Active Substance: ONDANSETRON HYDROCHLORIDE
  2. BROMPHENIRAMINE MALEATE. [Concomitant]
     Active Substance: BROMPHENIRAMINE MALEATE
  3. PROVENTIL HFA [Concomitant]
     Active Substance: ALBUTEROL SULFATE
  4. PREDNISONE. [Concomitant]
     Active Substance: PREDNISONE
  5. ALBUTEROL SULFATE. [Concomitant]
     Active Substance: ALBUTEROL SULFATE
  6. ESBRIET [Suspect]
     Active Substance: PIRFENIDONE
     Indication: IDIOPATHIC PULMONARY FIBROSIS
     Route: 048
     Dates: start: 20160518
  7. BACTRIM DS [Concomitant]
     Active Substance: SULFAMETHOXAZOLE\TRIMETHOPRIM

REACTIONS (4)
  - Nausea [Unknown]
  - Fatigue [Unknown]
  - Headache [Unknown]
  - Medication error [Unknown]
